FAERS Safety Report 17316719 (Version 2)
Quarter: 2020Q2

REPORT INFORMATION
  Report Type: Spontaneous
  Country: US (occurrence: US)
  Receive Date: 20200124
  Receipt Date: 20200603
  Transmission Date: 20200713
  Serious: No
  Sender: FDA-Public Use
  Company Number: US-STRONGBRIDGE BIOPHARMA-2020-STR-000021

PATIENT
  Age: 17 Year
  Sex: Male

DRUGS (4)
  1. KEVEYIS [Suspect]
     Active Substance: DICHLORPHENAMIDE
     Dosage: 100 MG, BID
     Route: 048
  2. KEVEYIS [Suspect]
     Active Substance: DICHLORPHENAMIDE
     Dosage: 50 MG, BID
     Route: 048
  3. KEVEYIS [Suspect]
     Active Substance: DICHLORPHENAMIDE
     Dosage: 50 MG, BID
     Route: 048
     Dates: start: 20180824
  4. KEVEYIS [Suspect]
     Active Substance: DICHLORPHENAMIDE
     Indication: FAMILIAL PERIODIC PARALYSIS
     Dosage: 75 MG, BID
     Route: 048

REACTIONS (6)
  - Paraesthesia oral [Recovered/Resolved]
  - Fatigue [Recovered/Resolved]
  - Vomiting [Recovered/Resolved]
  - Lethargy [Recovered/Resolved]
  - Nausea [Recovered/Resolved]
  - Wrong technique in product usage process [Unknown]

NARRATIVE: CASE EVENT DATE: 20180824
